FAERS Safety Report 9730809 (Version 4)
Quarter: 2014Q2

REPORT INFORMATION
  Report Type: Report from Study
  Country: US (occurrence: US)
  Receive Date: 20131202
  Receipt Date: 20140515
  Transmission Date: 20141212
  Serious: Yes (Life-Threatening, Hospitalization)
  Sender: FDA-Public Use
  Company Number: US-009507513-1305USA002021

PATIENT
  Age: 26 Year
  Sex: Female
  Weight: 45.9 kg

DRUGS (5)
  1. ASENAPINE MALEATE-BIPOLAR DISORDER [Suspect]
     Indication: BIPOLAR I DISORDER
     Dosage: 10 MG, BID
     Route: 060
     Dates: start: 20130327, end: 20130401
  2. CLONAZEPAM [Concomitant]
     Indication: BIPOLAR I DISORDER
     Dosage: 1 MG, TID
     Route: 048
     Dates: start: 20130402
  3. SEROQUEL [Concomitant]
     Indication: BIPOLAR I DISORDER
     Dosage: 600 MG, HS
     Route: 048
     Dates: start: 20130402
  4. IBUPROFEN [Concomitant]
     Indication: TOOTH REPAIR
     Dosage: 800 MG, PRN
     Route: 048
     Dates: start: 20130405, end: 20130419
  5. PRAZOSIN [Concomitant]
     Indication: ANXIETY
     Dosage: 1 MG, HS
     Route: 048
     Dates: start: 20130409

REACTIONS (2)
  - Suicide attempt [Recovered/Resolved]
  - Acute respiratory failure [Recovered/Resolved]
